FAERS Safety Report 21643859 (Version 1)
Quarter: 2022Q4

REPORT INFORMATION
  Report Type: Report from Study
  Country: US (occurrence: US)
  Receive Date: 20221125
  Receipt Date: 20221125
  Transmission Date: 20230113
  Serious: No
  Sender: FDA-Public Use
  Company Number: US-ABBVIE-4174218

PATIENT
  Sex: Female

DRUGS (14)
  1. RINVOQ [Suspect]
     Active Substance: UPADACITINIB
     Indication: Rheumatoid arthritis
     Route: 048
     Dates: start: 20220922
  2. METOPROLOL S TB2 25MG [Concomitant]
     Indication: Product used for unknown indication
  3. PANTOPRAZOLE TBE 40MG [Concomitant]
     Indication: Product used for unknown indication
  4. CETIRIZINE H TAB 10MG [Concomitant]
     Indication: Product used for unknown indication
     Route: 048
  5. TRADJENTA [Concomitant]
     Active Substance: LINAGLIPTIN
     Indication: Product used for unknown indication
     Route: 048
  6. PREMARIN CRE 0.625 G/GM [Concomitant]
     Indication: Product used for unknown indication
  7. LYUMJEV KWIK SOP 200UNIT [Concomitant]
     Indication: Product used for unknown indication
  8. HUMALOG SOL 100UNIT/ML [Concomitant]
     Indication: Product used for unknown indication
  9. POTASSIUM CH TBC 10MEQ [Concomitant]
     Indication: Product used for unknown indication
  10. MONTELUKAST [Concomitant]
     Active Substance: MONTELUKAST SODIUM
     Indication: Product used for unknown indication
     Route: 048
  11. TRESIBA FLEX SOP 100UNIT [Concomitant]
     Indication: Product used for unknown indication
  12. AMLODIPINE B CAP 5-40MG [Concomitant]
     Indication: Product used for unknown indication
     Route: 048
  13. FUROSEMIDE TAB 20MG [Concomitant]
     Indication: Product used for unknown indication
     Route: 048
  14. FAMOTIDINE TAB 40MG [Concomitant]
     Indication: Product used for unknown indication
     Route: 048

REACTIONS (1)
  - Fatigue [Not Recovered/Not Resolved]

NARRATIVE: CASE EVENT DATE: 20220101
